FAERS Safety Report 5308102-2 (Version None)
Quarter: 2007Q2

REPORT INFORMATION
  Report Type: 
  Country: None (occurrence: None)
  Receive Date: 20070426
  Receipt Date: 20070417
  Transmission Date: 20071010
  Serious: Yes (Other)
  Sender: FDA-Public Use
  Company Number: PHMT2007CA00750

PATIENT
  Age: 74 Year
  Sex: Male
  Weight: 92 kg

DRUGS (3)
  1. PAMIDRONATE DISODIUM [Suspect]
     Indication: METASTASES TO BONE
     Dosage: 40 MG IV, QMO
     Route: 042
     Dates: start: 20040501, end: 20060301
  2. HYDROMORPHONE HCL [Concomitant]
     Indication: SPONDYLITIS
  3. MORPHINE [Concomitant]
     Indication: NECK PAIN
     Dates: start: 20040101

REACTIONS (4)
  - BONE DEBRIDEMENT [None]
  - ORAL SURGERY [None]
  - OSTEONECROSIS [None]
  - PAIN IN JAW [None]
